FAERS Safety Report 9231065 (Version 2)
Quarter: 2013Q2

REPORT INFORMATION
  Report Type: Report from Study
  Country: US (occurrence: US)
  Receive Date: 20130415
  Receipt Date: 20130523
  Transmission Date: 20140414
  Serious: Yes (Hospitalization, Other)
  Sender: FDA-Public Use
  Company Number: US-ROCHE-1212724

PATIENT
  Age: 57 Year
  Sex: Female
  Weight: 91.71 kg

DRUGS (12)
  1. ACTEMRA [Suspect]
     Indication: RHEUMATOID ARTHRITIS
     Route: 042
     Dates: start: 20130122, end: 201302
  2. ACTEMRA [Suspect]
     Route: 042
     Dates: start: 20130301, end: 20130319
  3. RITUXAN [Suspect]
     Indication: RHEUMATOID ARTHRITIS
     Route: 042
     Dates: start: 2006, end: 2006
  4. REMICADE [Suspect]
     Indication: RHEUMATOID ARTHRITIS
     Route: 042
     Dates: start: 2011
  5. METHOTREXATE [Concomitant]
     Route: 058
     Dates: start: 2004, end: 20130319
  6. LEVOTHYROXINE [Concomitant]
     Route: 065
  7. VICODIN [Concomitant]
     Route: 065
  8. OMEPRAZOLE [Concomitant]
     Indication: DYSPEPSIA
     Dosage: 20 MG AS REQUIRED
     Route: 065
  9. ULTRAM [Concomitant]
     Route: 065
  10. PREDNISONE [Concomitant]
     Dosage: EVERYDAY
     Route: 048
     Dates: start: 201201
  11. ALEVE [Concomitant]
     Dosage: 2 TABS
     Route: 048
  12. ASPIRIN [Concomitant]
     Dosage: QD
     Route: 048

REACTIONS (8)
  - Blood pressure increased [Not Recovered/Not Resolved]
  - Chest pain [Unknown]
  - Pyrexia [Recovered/Resolved]
  - Cardiac flutter [Recovered/Resolved]
  - Hypertension [Recovered/Resolved]
  - Bronchitis [Recovered/Resolved]
  - Anxiety [Not Recovered/Not Resolved]
  - Fatigue [Recovered/Resolved]
